FAERS Safety Report 9536029 (Version 1)
Quarter: 2013Q3

REPORT INFORMATION
  Report Type: Spontaneous
  Country: US (occurrence: US)
  Receive Date: 20130919
  Receipt Date: 20130919
  Transmission Date: 20140515
  Serious: No
  Sender: FDA-Public Use
  Company Number: US-PFIZER INC-2013267012

PATIENT
  Age: 64 Year
  Sex: Male
  Weight: 63.49 kg

DRUGS (3)
  1. ADVIL [Suspect]
     Indication: HEADACHE
     Dosage: UNK
     Route: 048
  2. ADVIL [Suspect]
     Indication: NECK PAIN
  3. CLONAZEPAM [Concomitant]
     Dosage: UNK, DAILY

REACTIONS (1)
  - Dysphagia [Unknown]
